FAERS Safety Report 7531165-0 (Version None)
Quarter: 2011Q2

REPORT INFORMATION
  Report Type: 
  Country: None (occurrence: None)
  Receive Date: 20110608
  Receipt Date: 20110513
  Transmission Date: 20111010
  Serious: No
  Sender: FDA-Public Use
  Company Number: US-BAYER-2011-042061

PATIENT
  Age: 29 Year
  Sex: Female

DRUGS (3)
  1. BEYAZ [Suspect]
     Indication: VITAMIN SUPPLEMENTATION
  2. YAZ [Concomitant]
  3. BEYAZ [Suspect]
     Indication: CONTRACEPTION
     Dosage: UNK
     Dates: start: 20110101, end: 20110301

REACTIONS (1)
  - MENORRHAGIA [None]
